FAERS Safety Report 7250921-X (Version None)
Quarter: 2011Q1

REPORT INFORMATION
  Report Type: 
  Country: None (occurrence: None)
  Receive Date: 20110128
  Receipt Date: 20110119
  Transmission Date: 20110831
  Serious: Yes (Other)
  Sender: FDA-Public Use
  Company Number: A0908755A

PATIENT
  Sex: Male

DRUGS (1)
  1. PAXIL [Suspect]
     Indication: ANXIETY
     Route: 048
     Dates: start: 20040101

REACTIONS (14)
  - FEELING ABNORMAL [None]
  - AGGRESSION [None]
  - DEPRESSION [None]
  - PARAESTHESIA [None]
  - PANIC ATTACK [None]
  - DEPENDENCE [None]
  - ARTHRALGIA [None]
  - ANGER [None]
  - SLEEP DISORDER [None]
  - ASTHENIA [None]
  - SUICIDAL IDEATION [None]
  - DEPRESSED LEVEL OF CONSCIOUSNESS [None]
  - ALCOHOL USE [None]
  - CONFUSIONAL STATE [None]
